FAERS Safety Report 23075088 (Version 4)
Quarter: 2024Q1

REPORT INFORMATION
  Report Type: Spontaneous
  Country: CA (occurrence: CA)
  Receive Date: 20231017
  Receipt Date: 20240123
  Transmission Date: 20240410
  Serious: Yes (Life-Threatening, Other)
  Sender: FDA-Public Use
  Company Number: CA-PFIZER INC-202300325053

PATIENT
  Age: 46 Year
  Sex: Female

DRUGS (5)
  1. SOMATROPIN [Suspect]
     Active Substance: SOMATROPIN
     Indication: Growth hormone deficiency
     Dosage: 200 UG, 1X/DAY
     Route: 058
     Dates: start: 20210104
  2. SOMATROPIN [Suspect]
     Active Substance: SOMATROPIN
     Dosage: 0.3 MG, DAILY
     Route: 058
     Dates: end: 202307
  3. PROMETRIUM [Concomitant]
     Active Substance: PROGESTERONE
     Dosage: 100 MG, DAILY
     Dates: start: 202307
  4. DEHYDROEPIANDROSTERONE SULFATE [Concomitant]
     Dosage: UNK
     Dates: start: 202307
  5. TESTOSTERONE [Concomitant]
     Active Substance: TESTOSTERONE
     Dosage: UNK
     Dates: start: 202307

REACTIONS (1)
  - Breast cancer [Recovered/Resolved with Sequelae]

NARRATIVE: CASE EVENT DATE: 20230701
